FAERS Safety Report 23161152 (Version 5)
Quarter: 2024Q1

REPORT INFORMATION
  Report Type: Spontaneous
  Country: US (occurrence: US)
  Receive Date: 20231108
  Receipt Date: 20240222
  Transmission Date: 20240409
  Serious: No
  Sender: FDA-Public Use
  Company Number: US-PFIZER INC-PV202300176801

PATIENT
  Age: 12 Year
  Sex: Male
  Weight: 33.93 kg

DRUGS (6)
  1. GENOTROPIN [Suspect]
     Active Substance: SOMATROPIN
     Indication: Short stature
     Dosage: 1.4 MG, ONCE AT NIGHT
     Dates: start: 20231020
  2. GENOTROPIN [Suspect]
     Active Substance: SOMATROPIN
     Indication: Growth hormone deficiency
     Dosage: 0.8 MG
     Dates: start: 202310
  3. GUANFACINE [Concomitant]
     Active Substance: GUANFACINE
     Indication: Attention deficit hyperactivity disorder
     Dosage: 3 MG, ONCE A NIGHT; SWALLOWING IT WITH WATER
  4. CLONIDINE [Concomitant]
     Active Substance: CLONIDINE
     Indication: Attention deficit hyperactivity disorder
     Dosage: 0.1 MG, EVERY NIGHT AT BED TIME WITH WATER
  5. ANASTROZOLE [Concomitant]
     Active Substance: ANASTROZOLE
     Indication: Short stature
     Dosage: 1 MG, SWALLOW EVERY NIGHT WITH WATER
     Route: 048
  6. METHYLPHENIDATE HYDROCHLORIDE [Concomitant]
     Active Substance: METHYLPHENIDATE HYDROCHLORIDE
     Indication: Attention deficit hyperactivity disorder
     Dosage: 20 MG, JUST ONCE IN THE MORNING
     Route: 048

REACTIONS (4)
  - Incorrect dose administered by device [Unknown]
  - Poor quality device used [Unknown]
  - Device mechanical issue [Unknown]
  - Device delivery system issue [Unknown]

NARRATIVE: CASE EVENT DATE: 20231001
